FAERS Safety Report 4664892-3 (Version None)
Quarter: 2005Q2

REPORT INFORMATION
  Report Type: 
  Country: None (occurrence: None)
  Receive Date: 20050518
  Receipt Date: 20050311
  Transmission Date: 20051028
  Serious: Yes (Hospitalization)
  Sender: FDA-Public Use
  Company Number: US-BRISTOL-MYERS SQUIBB COMPANY-12895975

PATIENT
  Age: 47 Year
  Sex: Female

DRUGS (7)
  1. ERBITUX [Suspect]
     Indication: COLON CANCER METASTATIC
     Dosage: LOADING DOSE (640 MG), D/C HALF WAY THROUGHT INFUSION
     Route: 042
     Dates: start: 20050304, end: 20050304
  2. AVASTIN [Concomitant]
  3. BENADRYL [Concomitant]
     Indication: PREMEDICATION
     Route: 048
     Dates: start: 20050304, end: 20050304
  4. KYTRIL [Concomitant]
     Indication: PREMEDICATION
     Route: 048
     Dates: start: 20050304, end: 20050304
  5. XANAX [Concomitant]
  6. PERCOCET [Concomitant]
  7. M.V.I. [Concomitant]

REACTIONS (5)
  - BLOOD PRESSURE DECREASED [None]
  - CHEST DISCOMFORT [None]
  - HEADACHE [None]
  - HYPOAESTHESIA [None]
  - THROAT IRRITATION [None]
